FAERS Safety Report 8107218 (Version 2)
Quarter: 2018Q4

REPORT INFORMATION
  Report Type: Spontaneous
  Country: US (occurrence: US)
  Receive Date: 20110825
  Receipt Date: 20181213
  Transmission Date: 20190205
  Serious: Yes (Other)
  Sender: FDA-Public Use
  Company Number: US-BAYER-2011-060979

PATIENT
  Sex: Female

DRUGS (2)
  1. MIRENA [Suspect]
     Active Substance: LEVONORGESTREL
     Dosage: 20 MCG/24HR, CONT
     Route: 015
     Dates: start: 20101101, end: 20170207
  2. MIRENA [Suspect]
     Active Substance: LEVONORGESTREL

REACTIONS (9)
  - Vision blurred [None]
  - Idiopathic intracranial hypertension [None]
  - Headache [None]
  - Photophobia [None]
  - Tunnel vision [None]
  - Menstruation irregular [None]
  - Loss of consciousness [None]
  - Medical device pain [None]
  - Visual impairment [None]
